FAERS Safety Report 4652831-0 (Version None)
Quarter: 2005Q2

REPORT INFORMATION
  Report Type: 
  Country: None (occurrence: None)
  Receive Date: 20050427
  Receipt Date: 20050413
  Transmission Date: 20051028
  Serious: Yes (Hospitalization)
  Sender: FDA-Public Use
  Company Number: 2005-00506

PATIENT
  Age: 55 Year
  Sex: Female

DRUGS (1)
  1. IMMUCYST (BCG - IT (CONNAUGHT)), AVENTIS PASTEUR LTD., LOT NOT REP, I [Suspect]
     Indication: BLADDER CANCER
     Dosage: (81.0 MG), I.VES., BLADDER
     Route: 043
     Dates: start: 20041220, end: 20050126

REACTIONS (5)
  - CYSTITIS [None]
  - DIFFICULTY IN WALKING [None]
  - GAIT DISTURBANCE [None]
  - MUCOCUTANEOUS RASH [None]
  - REITER'S SYNDROME [None]
